FAERS Safety Report 8245550-5 (Version None)
Quarter: 2012Q1

REPORT INFORMATION
  Report Type: 
  Country: None (occurrence: None)
  Receive Date: 20120329
  Receipt Date: 20120323
  Transmission Date: 20120608
  Serious: Yes (Other)
  Sender: FDA-Public Use
  Company Number: ES-ASTRAZENECA-2012SE19731

PATIENT
  Age: 90 Year
  Sex: Male

DRUGS (2)
  1. ZOLADEX [Suspect]
     Indication: PROSTATE CANCER
     Route: 058
     Dates: start: 20120228, end: 20120228
  2. SINTROM [Suspect]
     Indication: ANTICOAGULANT THERAPY
     Dosage: 4 MG, 20 TABLETS
     Route: 048
     Dates: start: 20110101

REACTIONS (1)
  - APPLICATION SITE HAEMATOMA [None]
